FAERS Safety Report 8523838-8 (Version None)
Quarter: 2012Q3

REPORT INFORMATION
  Report Type: 
  Country: None (occurrence: None)
  Receive Date: 20120720
  Receipt Date: 20120716
  Transmission Date: 20120928
  Serious: Yes (Death, Other)
  Sender: FDA-Public Use
  Company Number: FR-PFIZER INC-2012170158

PATIENT
  Age: 15 Year
  Sex: Female

DRUGS (12)
  1. CIPROFLOXACIN HCL [Suspect]
     Dosage: UNK
     Dates: start: 20120528, end: 20120604
  2. VANCOMYCIN [Interacting]
     Dosage: 1 G, 2X/DAY
     Route: 042
     Dates: start: 20120522, end: 20120603
  3. GENTAMICIN [Interacting]
     Dosage: UNK
     Route: 042
     Dates: start: 20120526, end: 20120530
  4. NEUPOGEN [Concomitant]
     Dosage: UNK
     Dates: start: 20120401, end: 20120607
  5. COLISTIN [Concomitant]
     Dosage: UNK
  6. GENTAMICIN [Concomitant]
     Route: 048
  7. VFEND [Interacting]
     Indication: BRONCHOPULMONARY ASPERGILLOSIS
     Dosage: 200 MG, 2X/DAY
     Route: 042
     Dates: start: 20120514, end: 20120525
  8. NEORAL [Interacting]
     Dosage: 100 MG, 2X/DAY
     Route: 048
     Dates: start: 20120423, end: 20120531
  9. VFEND [Interacting]
     Dosage: 200 MG, 2X/DAY
     Route: 048
     Dates: end: 20120531
  10. BACTRIM [Suspect]
     Indication: PROPHYLAXIS
     Dosage: 1 DF, THREE TIMES PER WEEK
     Route: 042
     Dates: start: 20120401
  11. CLAVULANATE POTASSIUM [Suspect]
     Dosage: 1 DF, 3X/DAY
     Route: 042
     Dates: start: 20120528, end: 20120604
  12. CANCIDAS [Suspect]
     Dosage: UNK
     Route: 042
     Dates: start: 20120528, end: 20120530

REACTIONS (3)
  - OVERDOSE [None]
  - RENAL FAILURE ACUTE [None]
  - DRUG INTERACTION [None]
